FAERS Safety Report 16224881 (Version 2)
Quarter: 2019Q2

REPORT INFORMATION
  Report Type: Spontaneous
  Country: US (occurrence: US)
  Receive Date: 20190422
  Receipt Date: 20190428
  Transmission Date: 20190711
  Serious: No
  Sender: FDA-Public Use
  Company Number: US-JNJFOC-20190340012

PATIENT
  Age: 77 Year
  Sex: Female
  Weight: 45.36 kg

DRUGS (3)
  1. XANAX [Interacting]
     Active Substance: ALPRAZOLAM
     Indication: SLEEP DISORDER THERAPY
     Dosage: AT 4 AM
     Route: 065
     Dates: start: 20190326
  2. PLENDIL [Concomitant]
     Active Substance: FELODIPINE
     Indication: HYPERTENSION
     Dosage: ONE TIME AT NIGHT, WHENEVER BLOOD PRESSURE IS UP, BEEN TAKING FOR YEARS
     Route: 065
  3. TYLENOL EXTRA STRENGTH [Suspect]
     Active Substance: ACETAMINOPHEN
     Indication: COSTOCHONDRITIS
     Route: 048
     Dates: start: 20190326

REACTIONS (4)
  - Nausea [Not Recovered/Not Resolved]
  - Drug interaction [Unknown]
  - Abdominal discomfort [Not Recovered/Not Resolved]
  - Product use in unapproved indication [Unknown]

NARRATIVE: CASE EVENT DATE: 20190326
